FAERS Safety Report 25553209 (Version 2)
Quarter: 2025Q3

REPORT INFORMATION
  Report Type: Report from Study
  Country: EG (occurrence: EG)
  Receive Date: 20250715
  Receipt Date: 20250731
  Transmission Date: 20251020
  Serious: Yes (Hospitalization, Other)
  Sender: NOVARTIS
  Company Number: EG-002147023-NVSC2025EG111833

PATIENT
  Sex: Male
  Weight: 81 kg

DRUGS (1)
  1. COSENTYX [Suspect]
     Active Substance: SECUKINUMAB
     Indication: Ankylosing spondylitis
     Route: 058
     Dates: start: 2022

REACTIONS (4)
  - Pseudomonas infection [Recovered/Resolved]
  - Purulent discharge [Recovered/Resolved]
  - Decreased immune responsiveness [Recovered/Resolved]
  - Off label use [Unknown]

NARRATIVE: CASE EVENT DATE: 20220101
